FAERS Safety Report 20725733 (Version 2)
Quarter: 2022Q2

REPORT INFORMATION
  Report Type: Spontaneous
  Country: US (occurrence: US)
  Receive Date: 20220419
  Receipt Date: 20220518
  Transmission Date: 20220721
  Serious: Yes (Death, Other)
  Sender: FDA-Public Use
  Company Number: US-AMGEN-USASP2022064840

PATIENT

DRUGS (4)
  1. REPATHA [Suspect]
     Active Substance: EVOLOCUMAB
     Indication: Type IIa hyperlipidaemia
     Dosage: 140 MILLIGRAM/ML, Q2WK
     Route: 065
  2. REPATHA [Suspect]
     Active Substance: EVOLOCUMAB
     Indication: Arteriosclerosis
     Dosage: 420 MILLIGRAM/3.5ML, QMO
     Route: 065
  3. REPATHA [Suspect]
     Active Substance: EVOLOCUMAB
     Indication: Hyperlipidaemia
  4. EZETIMIBE [Concomitant]
     Active Substance: EZETIMIBE

REACTIONS (43)
  - Death [Fatal]
  - Cardiovascular disorder [Fatal]
  - Leukaemia [Unknown]
  - Angina unstable [Unknown]
  - Angina pectoris [Unknown]
  - Myocardial infarction [Unknown]
  - Transient ischaemic attack [Unknown]
  - Cerebrovascular accident [Unknown]
  - Percutaneous coronary intervention [Unknown]
  - Coronary artery bypass [Unknown]
  - Stent placement [Unknown]
  - Chemotherapy [Unknown]
  - Therapy partial responder [Unknown]
  - Therapy non-responder [Unknown]
  - Colitis [Unknown]
  - Coronary artery disease [Unknown]
  - Peripheral arterial occlusive disease [Unknown]
  - Abdominal pain [Unknown]
  - Pruritus [Unknown]
  - Cognitive disorder [Unknown]
  - Vomiting [Unknown]
  - Alopecia [Unknown]
  - Constipation [Unknown]
  - Blood creatine phosphokinase increased [Unknown]
  - Weight increased [Unknown]
  - Sneezing [Unknown]
  - Nasal congestion [Unknown]
  - Dizziness [Unknown]
  - Cough [Unknown]
  - Oropharyngeal pain [Unknown]
  - Fatigue [Unknown]
  - Diarrhoea [Unknown]
  - Rhinorrhoea [Unknown]
  - Myalgia [Unknown]
  - Injection site reaction [Unknown]
  - Headache [Unknown]
  - Swollen tongue [Unknown]
  - Rash [Unknown]
  - Influenza like illness [Unknown]
  - Nasopharyngitis [Unknown]
  - Arthralgia [Unknown]
  - Back pain [Unknown]
  - Nausea [Unknown]
